FAERS Safety Report 6734451-7 (Version None)
Quarter: 2010Q2

REPORT INFORMATION
  Report Type: 
  Country: None (occurrence: None)
  Receive Date: 20100520
  Receipt Date: 20100511
  Transmission Date: 20101027
  Serious: Yes (Other)
  Sender: FDA-Public Use
  Company Number: US-ABBOTT-10P-163-0644172-00

PATIENT
  Sex: Female
  Weight: 64.014 kg

DRUGS (4)
  1. HUMIRA [Suspect]
     Indication: RHEUMATOID ARTHRITIS
     Route: 058
     Dates: start: 20090201
  2. LYRICA [Concomitant]
     Indication: FIBROMYALGIA
  3. TIZANIDINE HCL [Concomitant]
     Indication: PAIN
     Dosage: 1-3
  4. CITALOPRAM [Concomitant]
     Indication: DRUG USE FOR UNKNOWN INDICATION

REACTIONS (3)
  - CONTUSION [None]
  - LIMB INJURY [None]
  - TENDONITIS [None]
